FAERS Safety Report 10429472 (Version 4)
Quarter: 2015Q1

REPORT INFORMATION
  Report Type: Spontaneous
  Country: US (occurrence: US)
  Receive Date: 20140904
  Receipt Date: 20150330
  Transmission Date: 20150720
  Serious: No
  Sender: FDA-Public Use
  Company Number: US-PFIZER INC-2014242558

PATIENT
  Age: 49 Year
  Sex: Female
  Weight: 51 kg

DRUGS (3)
  1. PREMPRO [Suspect]
     Active Substance: ESTROGENS, CONJUGATED\MEDROXYPROGESTERONE ACETATE
     Indication: HORMONE REPLACEMENT THERAPY
     Dosage: UNK, 1X/DAY
     Route: 048
     Dates: start: 2013
  2. PREMPRO [Suspect]
     Active Substance: ESTROGENS, CONJUGATED\MEDROXYPROGESTERONE ACETATE
     Indication: MENOPAUSE
     Dosage: UNK (HALF OF PREMPRO),1X/DAY
     Route: 048
  3. MUCUS RELIEF [Concomitant]
     Active Substance: GUAIFENESIN
     Indication: NASOPHARYNGITIS
     Dosage: UNK

REACTIONS (15)
  - Activities of daily living impaired [Recovering/Resolving]
  - Hypotension [Recovered/Resolved]
  - Feeling abnormal [Recovering/Resolving]
  - Intentional product misuse [Unknown]
  - Thyroid disorder [Unknown]
  - Confusional state [Recovering/Resolving]
  - Speech disorder [Recovering/Resolving]
  - Arthralgia [Not Recovered/Not Resolved]
  - Fatigue [Not Recovered/Not Resolved]
  - Weight increased [Recovering/Resolving]
  - Insomnia [Recovering/Resolving]
  - Emotional disorder [Recovering/Resolving]
  - Stress [Recovering/Resolving]
  - Back pain [Not Recovered/Not Resolved]
  - Thinking abnormal [Recovering/Resolving]

NARRATIVE: CASE EVENT DATE: 201502
